FAERS Safety Report 8481650 (Version 4)
Quarter: 2012Q4

REPORT INFORMATION
  Report Type: 
  Country: US (occurrence: US)
  Receive Date: 20120329
  Receipt Date: 20120830
  Transmission Date: 20130627
  Serious: Yes (Hospitalization, Disabling)
  Sender: FDA-Public Use
  Company Number: US-BAYER-2012-027397

PATIENT
  Age: 22 Year
  Sex: Female
  Weight: 63.9 kg

DRUGS (15)
  1. YAZ [Suspect]
     Indication: CONTRACEPTION
     Dosage: UNK
     Dates: start: 200606, end: 200903
  2. ASPIRIN [Concomitant]
  3. PREDNISONE [Concomitant]
  4. NOVOLOG [Concomitant]
  5. COLACE [Concomitant]
  6. SENNA [Concomitant]
  7. PEPCID [Concomitant]
  8. FOLIC ACID [Concomitant]
  9. BENADRYL [Concomitant]
  10. PERCOCET [Concomitant]
  11. AMBIEN [Concomitant]
  12. ZYVOX [Concomitant]
  13. CIPRO [Concomitant]
  14. FLEXERIL [Concomitant]
  15. IBUPROFEN [Concomitant]

REACTIONS (12)
  - Peripheral artery thrombosis [None]
  - Peripheral ischaemia [None]
  - Peripheral artery thrombosis [None]
  - Peripheral artery thrombosis [None]
  - Deep vein thrombosis [None]
  - Injury [None]
  - Pain [None]
  - Emotional distress [None]
  - Anxiety [None]
  - Depression [None]
  - General physical health deterioration [None]
  - Anxiety [None]
